FAERS Safety Report 6802650-1 (Version None)
Quarter: 2010Q2

REPORT INFORMATION
  Report Type: 
  Country: None (occurrence: None)
  Receive Date: 20100628
  Receipt Date: 20100617
  Transmission Date: 20101027
  Serious: Yes (Hospitalization, Other)
  Sender: FDA-Public Use
  Company Number: FR-WYE-G06288510

PATIENT
  Sex: Male

DRUGS (11)
  1. EFFEXOR XR [Suspect]
     Indication: DEPRESSION
     Dosage: 37.5MG 2 TIMES PER DAY FROM UNKNOWN DATE TO 18-MAY-2010, THEN 37.5MG 1 TIME PER DAY FROM 23-MAY-2010
     Route: 048
  2. LIORESAL [Concomitant]
     Dosage: 8 TABLETS TOTAL DAILY
  3. XANAX [Concomitant]
  4. RIVOTRIL [Concomitant]
  5. KESTINE [Concomitant]
  6. ENDOTELON [Concomitant]
     Dosage: 150 MG
  7. EFFERALGAN [Concomitant]
     Dosage: 2 G TOTAL DAILY
  8. SULFARLEM [Concomitant]
     Dosage: UNKNOWN
  9. ATARAX [Concomitant]
  10. RILUTEK [Concomitant]
  11. CETORNAN [Concomitant]
     Dosage: UNKNOWN

REACTIONS (12)
  - ALANINE AMINOTRANSFERASE INCREASED [None]
  - ASPARTATE AMINOTRANSFERASE INCREASED [None]
  - BLOOD BILIRUBIN INCREASED [None]
  - BRONCHIAL OBSTRUCTION [None]
  - DYSPNOEA [None]
  - GAMMA-GLUTAMYLTRANSFERASE INCREASED [None]
  - HYPERHIDROSIS [None]
  - HYPERTENSIVE CRISIS [None]
  - LIVEDO RETICULARIS [None]
  - LUNG INFECTION [None]
  - OXYGEN SATURATION DECREASED [None]
  - TACHYCARDIA [None]
